FAERS Safety Report 9722908 (Version 1)
Quarter: 2013Q4

REPORT INFORMATION
  Report Type: Spontaneous
  Country: JP (occurrence: JP)
  Receive Date: 20131202
  Receipt Date: 20131202
  Transmission Date: 20140711
  Serious: Yes (Other)
  Sender: FDA-Public Use
  Company Number: JP-ASTELLAS-2013JP013053

PATIENT
  Age: 13 Year
  Sex: Female

DRUGS (3)
  1. PROGRAF [Suspect]
     Indication: NEPHROTIC SYNDROME
     Dosage: 2 MG, UID/QD
     Route: 048
  2. PROGRAF [Suspect]
     Dosage: 1.5 MG, BID
     Route: 048
  3. PREDONINE                          /00016201/ [Concomitant]
     Route: 065

REACTIONS (2)
  - Off label use [Unknown]
  - Nephrotic syndrome [Unknown]
